FAERS Safety Report 7959082-2 (Version None)
Quarter: 2011Q4

REPORT INFORMATION
  Report Type: 
  Country: None (occurrence: None)
  Receive Date: 20111206
  Receipt Date: 20111206
  Transmission Date: 20120403
  Serious: Yes (Death)
  Sender: FDA-Public Use
  Company Number: None

PATIENT
  Age: 67 Year
  Sex: Male

DRUGS (20)
  1. PRILOSEC [Concomitant]
  2. LOVASTATIN [Concomitant]
  3. MS CONTIN [Concomitant]
  4. LEVLLALQUIN [Concomitant]
  5. METHOTREXATE [Suspect]
     Indication: PSORIATIC ARTHROPATHY
     Dosage: 0.8ML
     Route: 058
  6. FOLIC ACID [Concomitant]
  7. ATENOLOL [Concomitant]
  8. VANCOMYCIN [Concomitant]
  9. COMBIVENT [Concomitant]
  10. HYDROCHLOROTHIAZIDE [Concomitant]
  11. ZOSYN [Concomitant]
  12. SOLU-MEDROL [Concomitant]
  13. INFLIXIMAB [Concomitant]
     Indication: PSORIATIC ARTHROPATHY
     Dosage: 100MG
  14. ASPIRIN [Concomitant]
  15. BENAZEPRIL HYDROCHLORIDE [Concomitant]
  16. PROCARDIA [Concomitant]
  17. GUAIFENESIN [Concomitant]
  18. ALBUTEROL [Concomitant]
  19. EFFIENT [Concomitant]
  20. DOPAMINE HCL [Concomitant]

REACTIONS (8)
  - PNEUMONIA [None]
  - MALAISE [None]
  - SEPTIC SHOCK [None]
  - IMMUNOSUPPRESSION [None]
  - COUGH [None]
  - PYREXIA [None]
  - FATIGUE [None]
  - HYPOTENSION [None]
